FAERS Safety Report 25714168 (Version 1)
Quarter: 2025Q3

REPORT INFORMATION
  Report Type: Spontaneous
  Country: US (occurrence: US)
  Receive Date: 20250822
  Receipt Date: 20250822
  Transmission Date: 20251021
  Serious: No
  Sender: GRIFOLS
  Company Number: US-IGSA-BIG0032116

PATIENT
  Sex: Female
  Weight: 74.38 kg

DRUGS (31)
  1. XEMBIFY [Suspect]
     Active Substance: HUMAN IMMUNOGLOBULIN G
     Indication: Product used for unknown indication
  2. JAKAFI [Suspect]
     Active Substance: RUXOLITINIB
     Indication: Hypogammaglobulinaemia
  3. JAKAFI [Suspect]
     Active Substance: RUXOLITINIB
  4. POTASSIUM CHLORIDE [Concomitant]
     Active Substance: POTASSIUM CHLORIDE
     Route: 048
  5. AMLODIPINE BESYLATE [Concomitant]
     Active Substance: AMLODIPINE BESYLATE
  6. LORAZEPAM [Concomitant]
     Active Substance: LORAZEPAM
  7. MAGNESIUM [Concomitant]
     Active Substance: MAGNESIUM
  8. BACTRIM [Concomitant]
     Active Substance: SULFAMETHOXAZOLE\TRIMETHOPRIM
  9. ALLOPURINOL [Concomitant]
     Active Substance: ALLOPURINOL
  10. DICLOFENAC POTASSIUM [Concomitant]
     Active Substance: DICLOFENAC POTASSIUM
  11. ZALEPLON [Concomitant]
     Active Substance: ZALEPLON
  12. FLUCONAZOLE [Concomitant]
     Active Substance: FLUCONAZOLE
  13. ACYCLOVIR [Concomitant]
     Active Substance: ACYCLOVIR
  14. ALBUTEROL SULFATE [Concomitant]
     Active Substance: ALBUTEROL SULFATE
  15. COENZYME Q10 [Concomitant]
     Active Substance: DIETARY SUPPLEMENT\UBIDECARENONE
  16. BENADRYL ALLERGY [Concomitant]
     Active Substance: DIPHENHYDRAMINE HYDROCHLORIDE
  17. ZOFRAN [Concomitant]
     Active Substance: ONDANSETRON HYDROCHLORIDE
  18. VITAMIN D NOS [Concomitant]
     Active Substance: CHOLECALCIFEROL\ERGOCALCIFEROL
  19. ZETIA [Concomitant]
     Active Substance: EZETIMIBE
  20. TORSEMIDE [Concomitant]
     Active Substance: TORSEMIDE
  21. HYDROXYZINE HYDROCHLORIDE [Concomitant]
     Active Substance: HYDROXYZINE HYDROCHLORIDE
  22. DEXAMETHASONE [Concomitant]
     Active Substance: DEXAMETHASONE
  23. ELIQUIS [Concomitant]
     Active Substance: APIXABAN
  24. DILTIAZEM [Concomitant]
     Active Substance: DILTIAZEM
  25. HUMULIN N [Concomitant]
     Active Substance: INSULIN HUMAN
  26. HUMALOG [Concomitant]
     Active Substance: INSULIN LISPRO
  27. SYNTHROID [Concomitant]
     Active Substance: LEVOTHYROXINE SODIUM
  28. PEPCID AC [Concomitant]
     Active Substance: FAMOTIDINE
  29. ZYRTEC [Concomitant]
     Active Substance: CETIRIZINE HYDROCHLORIDE
  30. HYDROCORTISONE [Concomitant]
     Active Substance: HYDROCORTISONE
     Route: 061
  31. XIFAXAN [Concomitant]
     Active Substance: RIFAXIMIN

REACTIONS (8)
  - Chest discomfort [Unknown]
  - Throat irritation [Unknown]
  - Dyspnoea [Unknown]
  - Malaise [Unknown]
  - Headache [Unknown]
  - Pain [Unknown]
  - Nausea [Unknown]
  - Hypervolaemia [Unknown]

NARRATIVE: CASE EVENT DATE: 20241106
